FAERS Safety Report 7138564-X (Version None)
Quarter: 2010Q4

REPORT INFORMATION
  Report Type: 
  Country: None (occurrence: None)
  Receive Date: 20101201
  Receipt Date: 20101201
  Transmission Date: 20110411
  Serious: Yes (Other)
  Sender: FDA-Public Use
  Company Number: None

PATIENT
  Age: 55 Year
  Sex: Male
  Weight: 99.7913 kg

DRUGS (2)
  1. LUNESTA [Suspect]
     Indication: SLEEP DISORDER THERAPY
     Dosage: ONE TABLET 1 TAB AT BEDTIME PO
     Route: 048
     Dates: start: 20101120, end: 20101121
  2. SONATA [Suspect]
     Indication: SLEEP DISORDER THERAPY
     Dosage: ONE CAPSULE 1 CAP AT BEDTIME PO
     Route: 048
     Dates: start: 20101127, end: 20101128

REACTIONS (8)
  - DRUG EFFECT DECREASED [None]
  - DYSPNOEA [None]
  - HEADACHE [None]
  - HYPOVENTILATION [None]
  - MIDDLE INSOMNIA [None]
  - MUSCLE FATIGUE [None]
  - NASOPHARYNGITIS [None]
  - RHINORRHOEA [None]
